FAERS Safety Report 17452467 (Version 2)
Quarter: 2020Q1

REPORT INFORMATION
  Report Type: Spontaneous
  Country: US (occurrence: US)
  Receive Date: 20200224
  Receipt Date: 20200310
  Transmission Date: 20200409
  Serious: Yes (Hospitalization, Other)
  Sender: FDA-Public Use
  Company Number: US-009507513-2002USA007696

PATIENT
  Age: 70 Year
  Sex: Female
  Weight: 63.95 kg

DRUGS (4)
  1. PRAVASTATIN. [Suspect]
     Active Substance: PRAVASTATIN
     Indication: HYPERLIPIDAEMIA
     Dosage: 20 MILLIGRAM, QD
     Route: 048
     Dates: end: 20200214
  2. TIMOLOL MALEATE. [Concomitant]
     Active Substance: TIMOLOL MALEATE
     Indication: GLAUCOMA
     Dosage: 1 DROP TO THE LEFT EYE TWICE DALLY
     Route: 047
  3. INLYTA [Suspect]
     Active Substance: AXITINIB
     Indication: METASTATIC RENAL CELL CARCINOMA
     Dosage: 5 MILLIGRAM, BID
     Route: 048
     Dates: start: 20200129, end: 20200214
  4. KEYTRUDA [Suspect]
     Active Substance: PEMBROLIZUMAB
     Indication: METASTATIC RENAL CELL CARCINOMA
     Dosage: 200 MILLIGRAM, EVERY 21 DAYS
     Route: 042
     Dates: start: 20200129, end: 20200214

REACTIONS (9)
  - Palpitations [Recovering/Resolving]
  - Headache [Unknown]
  - Blood lactic acid increased [Unknown]
  - Diarrhoea [Recovered/Resolved]
  - Autoimmune pancreatitis [Recovering/Resolving]
  - Breath sounds abnormal [Unknown]
  - Anxiety [Unknown]
  - Enzyme abnormality [Unknown]
  - Blood urine present [Unknown]

NARRATIVE: CASE EVENT DATE: 202002
